FAERS Safety Report 19921856 (Version 1)
Quarter: 2021Q4

REPORT INFORMATION
  Report Type: Spontaneous
  Country: JP (occurrence: JP)
  Receive Date: 20211005
  Receipt Date: 20211005
  Transmission Date: 20220303
  Serious: Yes (Hospitalization, Other)
  Sender: FDA-Public Use
  Company Number: JP-BRISTOL-MYERS SQUIBB COMPANY-BMS-2019-035502

PATIENT
  Age: 79 Year
  Sex: Male

DRUGS (4)
  1. OPDIVO [Suspect]
     Active Substance: NIVOLUMAB
     Indication: Malignant melanoma
     Dosage: 2 MILLIGRAM/KILOGRAM
     Route: 041
     Dates: start: 20180208, end: 2018
  2. OPDIVO [Suspect]
     Active Substance: NIVOLUMAB
     Dosage: 240 MILLIGRAM
     Route: 041
     Dates: start: 2018, end: 2018
  3. OPDIVO [Suspect]
     Active Substance: NIVOLUMAB
     Dosage: 1 MILLIGRAM/KILOGRAM, Q3WK
     Route: 041
     Dates: start: 20181107, end: 20181219
  4. YERVOY [Suspect]
     Active Substance: IPILIMUMAB
     Indication: Malignant melanoma
     Dosage: 3 MILLIGRAM/KILOGRAM, Q3WK
     Route: 041
     Dates: start: 20181107, end: 20181219

REACTIONS (9)
  - Secondary adrenocortical insufficiency [Unknown]
  - Hypopituitarism [Unknown]
  - Metastases to central nervous system [Unknown]
  - Bile duct stone [Unknown]
  - Pruritus [Unknown]
  - Leukoderma [Unknown]
  - Muscular weakness [Unknown]
  - Somnolence [Unknown]
  - Malaise [Unknown]

NARRATIVE: CASE EVENT DATE: 20180801
